FAERS Safety Report 8616748 (Version 2)
Quarter: 2012Q4

REPORT INFORMATION
  Report Type: 
  Country: HR (occurrence: HR)
  Receive Date: 20120615
  Receipt Date: 20120920
  Transmission Date: 20130627
  Serious: Yes (Death, Other)
  Sender: FDA-Public Use
  Company Number: HR-MPIJNJ-2012-02008

PATIENT

DRUGS (9)
  1. VELCADE [Suspect]
     Indication: MULTIPLE MYELOMA
     Dosage: 1.3 mg/m2, UNK
     Route: 042
     Dates: start: 201112
  2. TERTENSIF [Concomitant]
  3. GLUCOPHAGE                         /00082701/ [Concomitant]
     Dosage: 100 mg, UNK
  4. PIGREL [Concomitant]
  5. LIPEX                              /00848101/ [Concomitant]
     Dosage: 20 mg, UNK
  6. TRITACE [Concomitant]
     Dosage: 2.5 mg, UNK
  7. SERETIDE                           /01420901/ [Concomitant]
     Dosage: 250 mg, UNK
  8. NITROLINGUAL-SPRAY [Concomitant]
  9. ALLOPURINOL [Concomitant]
     Dosage: 100 mg, UNK

REACTIONS (3)
  - Myocardial infarction [Fatal]
  - Peripheral sensory neuropathy [Unknown]
  - Decreased appetite [Unknown]
